FAERS Safety Report 8582179-3 (Version None)
Quarter: 2012Q3

REPORT INFORMATION
  Report Type: 
  Country: None (occurrence: None)
  Receive Date: 20120727
  Receipt Date: 20120712
  Transmission Date: 20120928
  Serious: Yes (Disabling, Other)
  Sender: FDA-Public Use
  Company Number: IN-1193207

PATIENT
  Age: 10 Year
  Sex: Female

DRUGS (6)
  1. CHLORAMPHENICOL 0.5 %EYE DROPS (CHLORAMPHENICOL 0.5%) (NONE) [Suspect]
     Indication: ULCERATIVE KERATITIS
     Dosage: (0.5 % QID OPHTHALMIC)
     Route: 047
  2. METHYLPREDNISOLONE [Suspect]
     Indication: ULCERATIVE KERATITIS
     Dosage: (500 MG QD 3 DAYS UNTIL INTRAVENOUS (NOT OTHERWISE SPECIFIED)
     Route: 042
  3. FOLIC ACID [Concomitant]
  4. ATROPINE SULFATE [Concomitant]
  5. PREDNISOLONE ACETATE [Suspect]
     Indication: ULCERATIVE KERATITIS
     Dosage: (1 % Q1H OPHTHALMIC), (TAPERED ACCORDING TO TREATMENT RESPONSE OPHTHALMIC)
     Route: 047
  6. METHOTREXATE [Suspect]
     Indication: ULCERATIVE KERATITIS
     Dosage: (7.5-12.5 MG/WEEK ORAL)
     Route: 048

REACTIONS (5)
  - ENDOPHTHALMITIS [None]
  - KERATITIS BACTERIAL [None]
  - ATROPHY OF GLOBE [None]
  - CORNEAL PERFORATION [None]
  - STREPTOCOCCUS TEST POSITIVE [None]
